FAERS Safety Report 8034542-7 (Version None)
Quarter: 2012Q1

REPORT INFORMATION
  Report Type: 
  Country: None (occurrence: None)
  Receive Date: 20120110
  Receipt Date: 20120104
  Transmission Date: 20120608
  Serious: Yes (Other)
  Sender: FDA-Public Use
  Company Number: NZ-PFIZER INC-2012003289

PATIENT
  Age: 40 Year
  Sex: Male

DRUGS (3)
  1. ACETYLSALICYLIC ACID [Concomitant]
  2. VARENICLINE TARTRATE [Suspect]
     Dosage: UNK
  3. SIMVASTATIN [Concomitant]

REACTIONS (1)
  - ANGINA UNSTABLE [None]
